FAERS Safety Report 9707811 (Version 1)
Quarter: 2013Q4

REPORT INFORMATION
  Report Type: Spontaneous
  Country: US (occurrence: US)
  Receive Date: 20131125
  Receipt Date: 20131125
  Transmission Date: 20140711
  Serious: Yes (Hospitalization, Other)
  Sender: FDA-Public Use
  Company Number: US-ACTAVIS-2013-20874

PATIENT
  Age: 26 Year
  Sex: Female

DRUGS (1)
  1. NEXT CHOICE ONE DOSE (WATSON LABORATORIES) [Suspect]
     Indication: PRODUCT USED FOR UNKNOWN INDICATION
     Dosage: UNK
     Route: 065
     Dates: start: 20131103

REACTIONS (4)
  - Ovarian cyst [Unknown]
  - Pelvic pain [Recovering/Resolving]
  - Menstruation irregular [Unknown]
  - Dysmenorrhoea [Unknown]
